FAERS Safety Report 24782278 (Version 1)
Quarter: 2024Q4

REPORT INFORMATION
  Report Type: Spontaneous
  Country: BR (occurrence: BR)
  Receive Date: 20241227
  Receipt Date: 20241227
  Transmission Date: 20250115
  Serious: Yes (Life-Threatening, Other)
  Sender: SANDOZ
  Company Number: BR-002147023-NVSC2020BR232202

PATIENT
  Sex: Female
  Weight: 45 kg

DRUGS (5)
  1. MIRTAZAPINE [Suspect]
     Active Substance: MIRTAZAPINE
     Indication: Product used for unknown indication
     Dosage: 30 MG EACH DAY
     Route: 065
  2. RISPERIDONE [Suspect]
     Active Substance: RISPERIDONE
     Indication: Product used for unknown indication
     Dosage: UNK (MORE THAN 2 DECADES)
     Route: 065
  3. BUSPIRONE [Concomitant]
     Active Substance: BUSPIRONE HYDROCHLORIDE
     Indication: Product used for unknown indication
     Dosage: 30 MG, QD  (DAILY)
     Route: 065
  4. CLOBAZAM [Concomitant]
     Active Substance: CLOBAZAM
     Indication: Product used for unknown indication
     Dosage: 10 MG, QD
     Route: 065
  5. MIRTAZAPINE [Concomitant]
     Active Substance: MIRTAZAPINE
     Indication: Product used for unknown indication
     Dosage: 30 MG, QD
     Route: 065

REACTIONS (19)
  - Suicide attempt [Unknown]
  - Intentional self-injury [Unknown]
  - Poisoning [Unknown]
  - Syncope [Unknown]
  - Presyncope [Unknown]
  - Suicidal ideation [Unknown]
  - Seizure [Unknown]
  - Impulsive behaviour [Unknown]
  - Nervousness [Unknown]
  - Dysgraphia [Unknown]
  - Adverse event [Unknown]
  - Mental disorder [Unknown]
  - Attention deficit hyperactivity disorder [Unknown]
  - Insomnia [Unknown]
  - Tremor [Unknown]
  - Anxiety [Unknown]
  - Dyspnoea [Not Recovered/Not Resolved]
  - Drug ineffective [Unknown]
  - Drug intolerance [Unknown]
